FAERS Safety Report 15596620 (Version 1)
Quarter: 2018Q4

REPORT INFORMATION
  Report Type: Spontaneous
  Country: US (occurrence: US)
  Receive Date: 20181107
  Receipt Date: 20181107
  Transmission Date: 20190205
  Serious: No
  Sender: FDA-Public Use
  Company Number: US-BAUSCH-BL-2018-030546

PATIENT
  Age: 80 Year
  Sex: Male

DRUGS (1)
  1. XIFAXAN [Suspect]
     Active Substance: RIFAXIMIN
     Indication: IRRITABLE BOWEL SYNDROME
     Route: 048
     Dates: start: 20181029

REACTIONS (4)
  - Back pain [Unknown]
  - Dry throat [Unknown]
  - Faecal volume decreased [Unknown]
  - Flatulence [Unknown]

NARRATIVE: CASE EVENT DATE: 201810
